FAERS Safety Report 25199595 (Version 1)
Quarter: 2025Q2

REPORT INFORMATION
  Report Type: Other
  Country: US (occurrence: US)
  Receive Date: 20250415
  Receipt Date: 20250415
  Transmission Date: 20250717
  Serious: Yes (Life-Threatening, Hospitalization, Other)
  Sender: COREPHARMA LLC
  Company Number: US-CorePharma LLC-2174940

PATIENT
  Age: 40 Year
  Sex: Male

DRUGS (1)
  1. ARMODAFINIL [Suspect]
     Active Substance: ARMODAFINIL
     Indication: Obstructive sleep apnoea syndrome

REACTIONS (3)
  - Cardiomyopathy [Recovering/Resolving]
  - Arteriospasm coronary [Recovering/Resolving]
  - Ventricular fibrillation [Recovering/Resolving]
